FAERS Safety Report 10393889 (Version 2)
Quarter: 2014Q3

REPORT INFORMATION
  Report Type: Spontaneous
  Country: US (occurrence: US)
  Receive Date: 20140819
  Receipt Date: 20140819
  Transmission Date: 20150326
  Serious: Yes (Other)
  Sender: FDA-Public Use
  Company Number: US-ASTELLAS-2013US013246

PATIENT
  Age: 48 Year
  Sex: Male

DRUGS (2)
  1. UNSPECIFIED TRADITIONAL MEDICINE [Concomitant]
     Active Substance: UNSPECIFIED INGREDIENT
     Indication: PRODUCT USED FOR UNKNOWN INDICATION
     Route: 065
  2. AMBISOME [Suspect]
     Active Substance: AMPHOTERICIN B
     Indication: CHORIORETINITIS
     Route: 042
     Dates: start: 20131211, end: 20131215

REACTIONS (1)
  - Renal impairment [Recovering/Resolving]

NARRATIVE: CASE EVENT DATE: 20131216
